FAERS Safety Report 19754870 (Version 5)
Quarter: 2021Q4

REPORT INFORMATION
  Report Type: Report from Study
  Country: CN (occurrence: CN)
  Receive Date: 20210827
  Receipt Date: 20211025
  Transmission Date: 20220303
  Serious: Yes (Death, Hospitalization)
  Sender: FDA-Public Use
  Company Number: CN-ROCHE-2896603

PATIENT
  Age: 56 Year
  Sex: Male
  Weight: 73 kg

DRUGS (10)
  1. ATEZOLIZUMAB [Suspect]
     Active Substance: ATEZOLIZUMAB
     Indication: Small cell lung cancer extensive stage
     Dosage: DAY 1 OF EACH 21-DAY CYCLE?MOST RECENT DOSES ON PRIOR TO SAE ON 20/FEB/2021, 17/MAR/2021, 14/APR/202
     Route: 041
     Dates: start: 20210127, end: 20210127
  2. CISPLATIN [Suspect]
     Active Substance: CISPLATIN
     Indication: Small cell lung cancer extensive stage
     Dosage: 75 MG/M2 FROM DAY 1 OF EACH 21-DAY CYCLE DURING THE INDUCTION PHASE (CYCLES 1-4)?MOST RECENT DOSE OF
     Route: 042
     Dates: start: 20210127, end: 20210127
  3. ETOPOSIDE [Suspect]
     Active Substance: ETOPOSIDE
     Indication: Small cell lung cancer extensive stage
     Dosage: ON DAYS 1, 2 AND 3 OF EACH 21-DAY CYCLE DURING THE INDUCTION PHASE (CYCLES 1-4).?MOST RECENT DOSE OF
     Route: 042
     Dates: start: 20210127, end: 20210127
  4. ETOPOSIDE [Suspect]
     Active Substance: ETOPOSIDE
     Dosage: DAY 1-3
     Route: 041
     Dates: start: 20210220
  5. ETOPOSIDE [Suspect]
     Active Substance: ETOPOSIDE
     Route: 041
     Dates: start: 20210317
  6. AMLODIPINE BESYLATE [Concomitant]
     Active Substance: AMLODIPINE BESYLATE
     Route: 048
     Dates: start: 202103
  7. AMLODIPINE BESYLATE [Concomitant]
     Active Substance: AMLODIPINE BESYLATE
     Route: 048
     Dates: start: 202003
  8. AMLODIPINE BESYLATE [Concomitant]
     Active Substance: AMLODIPINE BESYLATE
     Route: 048
     Dates: start: 20210802, end: 20210803
  9. AMLODIPINE BESYLATE [Concomitant]
     Active Substance: AMLODIPINE BESYLATE
     Route: 048
     Dates: start: 20210817, end: 2021
  10. OMEPRAZOLE [Concomitant]
     Active Substance: OMEPRAZOLE
     Dates: start: 20210802, end: 2021

REACTIONS (1)
  - Pain [Not Recovered/Not Resolved]

NARRATIVE: CASE EVENT DATE: 20210602
